FAERS Safety Report 4508154-3 (Version None)
Quarter: 2004Q4

REPORT INFORMATION
  Report Type: 
  Country: None (occurrence: None)
  Receive Date: 20041123
  Receipt Date: 20031029
  Transmission Date: 20050328
  Serious: No
  Sender: FDA-Public Use
  Company Number: US-GLAXOSMITHKLINE-A0432134A

PATIENT
  Age: 80 Year
  Sex: Female

DRUGS (8)
  1. WELLBUTRIN [Suspect]
     Dosage: 150MG TWICE PER DAY
     Route: 048
     Dates: start: 20030901, end: 20031029
  2. PAXIL [Suspect]
     Indication: DEPRESSION
     Dosage: 25MG PER DAY
     Route: 048
  3. SYNTHROID [Concomitant]
     Dosage: .75MG PER DAY
  4. DURAGESIC [Concomitant]
     Route: 062
  5. BACTRIM [Concomitant]
  6. ALLOPURINOL [Concomitant]
  7. COLCHICINE [Concomitant]
  8. IMIPRAM TAB [Concomitant]

REACTIONS (6)
  - DRUG INEFFECTIVE [None]
  - DRY MOUTH [None]
  - FEELING ABNORMAL [None]
  - HYPERHIDROSIS [None]
  - TREMOR [None]
  - VISION BLURRED [None]
